FAERS Safety Report 8522754-5 (Version None)
Quarter: 2012Q3

REPORT INFORMATION
  Report Type: 
  Country: None (occurrence: None)
  Receive Date: 20120719
  Receipt Date: 20120710
  Transmission Date: 20120928
  Serious: Yes (Hospitalization, Disabling, Other)
  Sender: FDA-Public Use
  Company Number: US-009507513-1203USA03317

PATIENT

DRUGS (15)
  1. FOSAMAX [Suspect]
     Indication: OSTEOPOROSIS
     Dosage: 10 MG, QD
     Route: 048
  2. ADVAIR DISKUS 100/50 [Concomitant]
     Indication: ASTHMA
     Dates: start: 20060101, end: 20110101
  3. CELESTONE (BETAMETHASONE SODIUM PHOSPHATE (+) SULFACETAMIDE SODIUM) [Concomitant]
  4. ACTONEL [Concomitant]
     Indication: OSTEOPOROSIS PROPHYLAXIS
     Dosage: 30/35
     Dates: start: 20030501, end: 20030901
  5. FOSAMAX [Suspect]
     Dosage: 70 MG, UNK
     Route: 048
  6. COMBIVENT [Concomitant]
     Indication: ASTHMA
  7. FOSAMAX [Suspect]
     Indication: OSTEOPOROSIS PROPHYLAXIS
     Dosage: 70 MG, QW
     Route: 048
  8. CALCIUM (UNSPECIFIED) [Concomitant]
     Indication: OSTEOPOROSIS
  9. AZMACORT [Concomitant]
     Indication: ASTHMA
     Dates: start: 19930601
  10. ATROVENT [Concomitant]
     Indication: ASTHMA
  11. THEO-24 [Concomitant]
     Indication: ASTHMA
  12. PROVENTIL [Concomitant]
     Indication: ASTHMA
  13. SEREVENT [Concomitant]
     Indication: ASTHMA
  14. CORTICOSTEROIDS (UNSPECIFIED) [Concomitant]
     Dates: start: 19800101, end: 20120201
  15. SINGULAIR [Concomitant]
     Indication: ASTHMA

REACTIONS (73)
  - PNEUMONIA [None]
  - ELECTROCARDIOGRAM ABNORMAL [None]
  - DILATATION ATRIAL [None]
  - STRESS FRACTURE [None]
  - RETINAL DETACHMENT [None]
  - URINARY TRACT INFECTION [None]
  - VENOUS INSUFFICIENCY [None]
  - CERUMEN IMPACTION [None]
  - HYPERCHOLESTEROLAEMIA [None]
  - CERVICOBRACHIAL SYNDROME [None]
  - APPENDIX DISORDER [None]
  - OEDEMA PERIPHERAL [None]
  - NECK PAIN [None]
  - HEADACHE [None]
  - STATUS ASTHMATICUS [None]
  - BLOOD PRESSURE INCREASED [None]
  - DEAFNESS NEUROSENSORY [None]
  - SKELETAL INJURY [None]
  - UPPER RESPIRATORY TRACT INFECTION [None]
  - TEMPOROMANDIBULAR JOINT SYNDROME [None]
  - COLONIC POLYP [None]
  - RECTAL POLYP [None]
  - EXOSTOSIS [None]
  - CARTILAGE INJURY [None]
  - CARDIOMEGALY [None]
  - SLEEP DISORDER [None]
  - VERTIGO CNS ORIGIN [None]
  - SINUS TACHYCARDIA [None]
  - RENAL DISORDER [None]
  - BACK PAIN [None]
  - VOMITING [None]
  - NAUSEA [None]
  - CONSTIPATION [None]
  - GASTROOESOPHAGEAL REFLUX DISEASE [None]
  - ASTHMA [None]
  - ANAEMIA POSTOPERATIVE [None]
  - ARTHROPATHY [None]
  - HAND DEFORMITY [None]
  - HYPERTENSION [None]
  - HERNIA [None]
  - GALLBLADDER DISORDER [None]
  - ADVERSE DRUG REACTION [None]
  - DERMATITIS [None]
  - MITRAL VALVE DISEASE [None]
  - CARDIAC HYPERTROPHY [None]
  - DIZZINESS [None]
  - OSTEOARTHRITIS [None]
  - CATARACT [None]
  - ARTHRITIS [None]
  - CAROTID BRUIT [None]
  - BRONCHITIS [None]
  - EYE DISORDER [None]
  - VISION BLURRED [None]
  - SOMNOLENCE [None]
  - HERPES ZOSTER [None]
  - SACROILIITIS [None]
  - WEIGHT INCREASED [None]
  - AORTIC VALVE INCOMPETENCE [None]
  - VESTIBULAR DISORDER [None]
  - ABDOMINAL PAIN UPPER [None]
  - HAEMOPHILUS INFECTION [None]
  - FEMUR FRACTURE [None]
  - OSTEOPOROSIS [None]
  - VITREOUS FLOATERS [None]
  - TINNITUS [None]
  - NASAL OBSTRUCTION [None]
  - LOW TURNOVER OSTEOPATHY [None]
  - HEAD INJURY [None]
  - DEVICE RELATED INFECTION [None]
  - HAEMORRHOIDS [None]
  - MENIERE'S DISEASE [None]
  - INTERVERTEBRAL DISC DEGENERATION [None]
  - MUSCULOSKELETAL CHEST PAIN [None]
